FAERS Safety Report 24918814 (Version 1)
Quarter: 2025Q1

REPORT INFORMATION
  Report Type: Spontaneous
  Country: US (occurrence: US)
  Receive Date: 20250204
  Receipt Date: 20250204
  Transmission Date: 20250409
  Serious: Yes (Other)
  Sender: CHURCH & DWIGHT
  Company Number: US-ChurchDwight-2025-CDW-00145

PATIENT

DRUGS (1)
  1. ORAJEL 3X MEDICATED FOR ALL MOUTH SORES [Suspect]
     Active Substance: BENZOCAINE\MENTHOL\ZINC CHLORIDE
     Indication: Product used for unknown indication
     Route: 061

REACTIONS (2)
  - Dyspnoea [Unknown]
  - Pharyngeal hypoaesthesia [Unknown]
